FAERS Safety Report 6469847-4 (Version None)
Quarter: 2009Q4

REPORT INFORMATION
  Report Type: 
  Country: None (occurrence: None)
  Receive Date: 20091203
  Receipt Date: 20090623
  Transmission Date: 20100525
  Serious: Yes (Hospitalization)
  Sender: FDA-Public Use
  Company Number: JP-ELI_LILLY_AND_COMPANY-JP200711004085

PATIENT
  Sex: Female
  Weight: 66.9 kg

DRUGS (8)
  1. SOMATROPIN [Suspect]
     Indication: GROWTH HORMONE DEFICIENCY
     Dosage: 0.1 MG, 5/W
     Route: 058
     Dates: start: 20060516, end: 20060829
  2. SOMATROPIN [Suspect]
     Dosage: 0.2 MG, 5/W
     Route: 058
     Dates: start: 20060830, end: 20071106
  3. THYRADIN S [Concomitant]
     Indication: SECONDARY HYPOTHYROIDISM
     Dosage: 75 UG, DAILY (1/D)
     Route: 048
     Dates: start: 20000427
  4. CORTRIL [Concomitant]
     Indication: SECONDARY ADRENOCORTICAL INSUFFICIENCY
     Dosage: 10 MG, DAILY (1/D)
     Route: 048
     Dates: start: 20000427
  5. SOPHIA A [Concomitant]
     Indication: SECONDARY HYPOGONADISM
     Dosage: 1 D/F, DAILY (1/D)
     Route: 048
     Dates: start: 20000427
  6. PREMARIN [Concomitant]
     Indication: SECONDARY HYPOGONADISM
     Dosage: 0.625 MG, DAILY (1/D)
     Route: 048
     Dates: start: 20000427
  7. MEVAN                              /00880402/ [Concomitant]
     Indication: HYPERLIPIDAEMIA
     Dosage: 5 MG, DAILY (1/D)
     Route: 048
     Dates: start: 20000926
  8. DESMOPRESSIN [Concomitant]
     Indication: DIABETES INSIPIDUS
     Dosage: 0.05 ML, DAILY (1/D)
     Route: 045
     Dates: start: 20000927

REACTIONS (1)
  - NON-SECRETORY ADENOMA OF PITUITARY [None]
